FAERS Safety Report 10656000 (Version 2)
Quarter: 2014Q4

REPORT INFORMATION
  Report Type: Spontaneous
  Country: BE (occurrence: BE)
  Receive Date: 20141216
  Receipt Date: 20141222
  Transmission Date: 20150529
  Serious: Yes (Hospitalization, Other)
  Sender: FDA-Public Use
  Company Number: BE-BAXTER-2014BAX073387

PATIENT
  Age: 58 Year
  Sex: Female

DRUGS (8)
  1. 0.9% SODIUM CHLORIDE INJECTION [Suspect]
     Active Substance: SODIUM CHLORIDE
     Indication: LYMPHOMA
     Dosage: PORT A CATH
     Route: 042
  2. HOLOXAN [Suspect]
     Active Substance: IFOSFAMIDE
     Dosage: PORT A CATH
     Route: 042
     Dates: start: 20141104, end: 20141106
  3. CARBOPLATIN. [Concomitant]
     Active Substance: CARBOPLATIN
     Dosage: PORT A CATH
     Route: 042
     Dates: start: 20141104, end: 20141106
  4. CARBOPLATIN. [Concomitant]
     Active Substance: CARBOPLATIN
     Indication: LYMPHOMA
     Dosage: PORT A CATH
     Route: 042
  5. UROMITEXAN MULTIDOSE, 5G/50ML, SOLUTION INJECTABLE [Suspect]
     Active Substance: MESNA
     Indication: LYMPHOMA
     Dosage: PORT A CATH
     Route: 042
     Dates: end: 20141203
  6. HOLOXAN [Suspect]
     Active Substance: IFOSFAMIDE
     Indication: LYMPHOMA
     Dosage: PORT A CATH
     Route: 042
     Dates: end: 20141203
  7. ETOPOSIDE. [Concomitant]
     Active Substance: ETOPOSIDE
     Indication: LYMPHOMA
     Dosage: PORT A CATH
     Route: 042
  8. ETOPOSIDE. [Concomitant]
     Active Substance: ETOPOSIDE
     Dosage: PORT A CATH
     Route: 042
     Dates: start: 20141104, end: 20141106

REACTIONS (8)
  - Extravasation [Recovered/Resolved]
  - Body temperature abnormal [Unknown]
  - Chills [Unknown]
  - Injection site oedema [Recovered/Resolved]
  - Bladder disorder [Unknown]
  - Encephalitis [Unknown]
  - Injection site pain [Recovered/Resolved]
  - Injection site erythema [Recovered/Resolved]

NARRATIVE: CASE EVENT DATE: 20141203
